FAERS Safety Report 18503205 (Version 4)
Quarter: 2020Q4

REPORT INFORMATION
  Report Type: Report from Study
  Country: DE (occurrence: DE)
  Receive Date: 20201113
  Receipt Date: 20201231
  Transmission Date: 20210114
  Serious: Yes (Hospitalization)
  Sender: FDA-Public Use
  Company Number: DE-JNJFOC-20201122327

PATIENT
  Age: 44 Year
  Sex: Female

DRUGS (1)
  1. VENTAVIS [Suspect]
     Active Substance: ILOPROST
     Indication: PULMONARY ARTERIAL HYPERTENSION
     Route: 055
     Dates: end: 202010

REACTIONS (5)
  - Fatigue [Unknown]
  - Fluid retention [Recovering/Resolving]
  - Cough [Recovering/Resolving]
  - Inappropriate schedule of product administration [Recovering/Resolving]
  - General physical condition abnormal [Recovering/Resolving]

NARRATIVE: CASE EVENT DATE: 20201014
